FAERS Safety Report 21588597 (Version 1)
Quarter: 2022Q4

REPORT INFORMATION
  Report Type: Spontaneous
  Country: US (occurrence: US)
  Receive Date: 20221114
  Receipt Date: 20221114
  Transmission Date: 20230113
  Serious: Yes (Other)
  Sender: FDA-Public Use
  Company Number: US-SA-SAC20221111000695

PATIENT
  Age: 56 Year

DRUGS (9)
  1. DUPIXENT [Suspect]
     Active Substance: DUPILUMAB
     Indication: Neurodermatitis
     Dosage: 1 DF, QOW
     Route: 058
     Dates: start: 20200616
  2. ZANTAC [Concomitant]
     Active Substance: RANITIDINE HYDROCHLORIDE
  3. VALTREX [Concomitant]
     Active Substance: VALACYCLOVIR HYDROCHLORIDE
  4. TRIAMCINOLONE [Concomitant]
     Active Substance: TRIAMCINOLONE
  5. TAMOXIFEN [Concomitant]
     Active Substance: TAMOXIFEN
  6. TACROLIMUS [Concomitant]
     Active Substance: TACROLIMUS
  7. PROTOPIC [Concomitant]
     Active Substance: TACROLIMUS
  8. PERJETA [Concomitant]
     Active Substance: PERTUZUMAB
  9. ZOLEDRONIC [Concomitant]
     Active Substance: ZOLEDRONIC ACID
     Dosage: UNK

REACTIONS (1)
  - Neoplasm malignant [Unknown]
